FAERS Safety Report 18684866 (Version 4)
Quarter: 2021Q1

REPORT INFORMATION
  Report Type: Spontaneous
  Country: US (occurrence: US)
  Receive Date: 20201230
  Receipt Date: 20210223
  Transmission Date: 20210419
  Serious: No
  Sender: FDA-Public Use
  Company Number: US-PFIZER INC-2020511247

PATIENT
  Age: 78 Year
  Sex: Female
  Weight: 108.86 kg

DRUGS (1)
  1. IBRANCE [Suspect]
     Active Substance: PALBOCICLIB
     Indication: BONE CANCER
     Dosage: 125 MG, CYCLIC (125MG ONE TABLET BY MOUTH ONCE DAILY, ON FOR THREE WEEKS, OFF FOR ONE WEEK)
     Route: 048
     Dates: start: 202011, end: 20201215

REACTIONS (5)
  - Asthenia [Recovered/Resolved]
  - Off label use [Unknown]
  - Drug effective for unapproved indication [Unknown]
  - Neoplasm progression [Unknown]
  - Lymphadenopathy [Not Recovered/Not Resolved]

NARRATIVE: CASE EVENT DATE: 20201213
